FAERS Safety Report 8954890 (Version 1)
Quarter: 2012Q4

REPORT INFORMATION
  Report Type: 
  Country: US (occurrence: US)
  Receive Date: 20121207
  Receipt Date: 20121207
  Transmission Date: 20130627
  Serious: Yes (Other)
  Sender: FDA-Public Use
  Company Number: CHPA2012US022946

PATIENT

DRUGS (4)
  1. EXCEDRIN EXTRA STRENGTH [Suspect]
     Indication: HEADACHE
     Dosage: 2 DF, PRN
     Route: 048
     Dates: start: 2004, end: 2011
  2. EXCEDRIN EXTRA STRENGTH [Suspect]
     Dosage: 2 DF, PRN
     Route: 048
  3. ANTIHYPERTENSIVES [Concomitant]
     Indication: HYPERTENSION
     Dosage: Unk, Unk
  4. DRUG THERAPY NOS [Concomitant]
     Dosage: Unk, Unk

REACTIONS (3)
  - Pneumonia [Recovered/Resolved]
  - Tooth abscess [Unknown]
  - Wrong technique in drug usage process [Unknown]
